FAERS Safety Report 5377869-X (Version None)
Quarter: 2007Q3

REPORT INFORMATION
  Report Type: 
  Country: None (occurrence: None)
  Receive Date: 20070703
  Receipt Date: 20070627
  Transmission Date: 20080115
  Serious: Yes (Other)
  Sender: FDA-Public Use
  Company Number: JP-PFIZER INC-2007053403

PATIENT
  Age: 47 Year
  Sex: Male

DRUGS (2)
  1. VIAGRA [Suspect]
     Dosage: DAILY DOSE:50MG
     Route: 048
  2. LEVITRA [Concomitant]

REACTIONS (1)
  - MACULAR DEGENERATION [None]
